FAERS Safety Report 13984097 (Version 7)
Quarter: 2017Q4

REPORT INFORMATION
  Report Type: Spontaneous
  Country: US (occurrence: US)
  Receive Date: 20170918
  Receipt Date: 20171130
  Transmission Date: 20180321
  Serious: Yes (Other)
  Sender: FDA-Public Use
  Company Number: PHHY2017US136817

PATIENT
  Age: 65 Year
  Sex: Female

DRUGS (12)
  1. DOXYCYCLINE. [Concomitant]
     Active Substance: DOXYCYCLINE
     Indication: PRODUCT USED FOR UNKNOWN INDICATION
     Route: 065
  2. PRAVASTATIN. [Concomitant]
     Active Substance: PRAVASTATIN
     Indication: PRODUCT USED FOR UNKNOWN INDICATION
     Route: 065
  3. VOLTAREN [Suspect]
     Active Substance: DICLOFENAC SODIUM
     Indication: MENISCUS INJURY
  4. METRONIDAZOLE. [Suspect]
     Active Substance: METRONIDAZOLE
     Indication: ROSACEA
     Dosage: UNK
     Route: 065
     Dates: start: 20170410
  5. GENTAMICIN. [Suspect]
     Active Substance: GENTAMICIN
     Indication: CONJUNCTIVITIS
     Dosage: UNK
     Route: 065
     Dates: start: 20161223
  6. KETOROLAC [Concomitant]
     Active Substance: KETOROLAC\KETOROLAC TROMETHAMINE
     Indication: PRODUCT USED FOR UNKNOWN INDICATION
     Route: 065
  7. VOLTAREN [Suspect]
     Active Substance: DICLOFENAC SODIUM
     Indication: PAIN
     Dosage: UNK
     Route: 065
     Dates: start: 2011
  8. VOLTAREN [Suspect]
     Active Substance: DICLOFENAC SODIUM
     Indication: WRIST FRACTURE
  9. LEVOFLOXACIN. [Concomitant]
     Active Substance: LEVOFLOXACIN
     Indication: PRODUCT USED FOR UNKNOWN INDICATION
     Route: 065
  10. CIPROFLOXACIN. [Concomitant]
     Active Substance: CIPROFLOXACIN
     Indication: PRODUCT USED FOR UNKNOWN INDICATION
     Route: 065
  11. VOLTAREN [Suspect]
     Active Substance: DICLOFENAC SODIUM
     Indication: ARTHRITIS
  12. BUSPIRONE HYDROCHLORIDE. [Concomitant]
     Active Substance: BUSPIRONE HYDROCHLORIDE
     Indication: PRODUCT USED FOR UNKNOWN INDICATION
     Route: 065

REACTIONS (17)
  - Rash macular [Unknown]
  - Condition aggravated [Unknown]
  - Adverse drug reaction [Unknown]
  - Cystitis interstitial [Unknown]
  - Dry eye [Unknown]
  - Off label use [Recovered/Resolved]
  - Haemorrhage [Unknown]
  - Dermatitis [Recovering/Resolving]
  - Rosacea [Not Recovered/Not Resolved]
  - Arthritis [Unknown]
  - Vascular injury [Recovered/Resolved]
  - Pruritus generalised [Unknown]
  - Product use in unapproved indication [Recovered/Resolved]
  - Acne [Recovering/Resolving]
  - Ill-defined disorder [Unknown]
  - Pruritus [Recovered/Resolved]
  - Conjunctivitis [Unknown]

NARRATIVE: CASE EVENT DATE: 201603
